FAERS Safety Report 7002513-5 (Version None)
Quarter: 2010Q3

REPORT INFORMATION
  Report Type: 
  Country: None (occurrence: None)
  Receive Date: 20100917
  Receipt Date: 20100917
  Transmission Date: 20110219
  Serious: No
  Sender: FDA-Public Use
  Company Number: None

PATIENT
  Age: 58 Year
  Sex: Female
  Weight: 68.0396 kg

DRUGS (4)
  1. FEXOFENADINE HCL AND PSEUDOEPHEDRINE HCL [Suspect]
     Indication: RHINITIS ALLERGIC
     Dosage: 1 TAB QD ORAL
     Route: 048
     Dates: start: 20091101
  2. FEXOFENADINE HCL AND PSEUDOEPHEDRINE HCL [Suspect]
     Indication: VASOMOTOR RHINITIS
     Dosage: 1 TAB QD ORAL
     Route: 048
     Dates: start: 20091101
  3. FEXOFENADINE HCL AND PSEUDOEPHEDRINE HCL [Suspect]
     Indication: RHINITIS ALLERGIC
     Dosage: 1 TAB QD ORAL
     Route: 048
     Dates: start: 20091201
  4. FEXOFENADINE HCL AND PSEUDOEPHEDRINE HCL [Suspect]
     Indication: VASOMOTOR RHINITIS
     Dosage: 1 TAB QD ORAL
     Route: 048
     Dates: start: 20091201

REACTIONS (1)
  - PRODUCT SUBSTITUTION ISSUE [None]
